FAERS Safety Report 9034721 (Version 1)
Quarter: 2013Q1

REPORT INFORMATION
  Report Type: Spontaneous
  Country: US (occurrence: None)
  Receive Date: 20130118
  Receipt Date: 20130118
  Transmission Date: 20140127
  Serious: Yes (Other)
  Sender: FDA-Public Use
  Company Number: DSA_61912_2013

PATIENT
  Age: 63 Year
  Sex: Female
  Weight: 72 kg

DRUGS (4)
  1. ENALAPRIL MALEATE (ENALAPRIL MALEATE) [Suspect]
     Indication: HYPERTENSION
     Dosage: (1/24 H)
     Dates: start: 20110720
  2. JANUMET [Suspect]
     Dosage: (1/12 H)
     Dates: start: 20121127, end: 20121205
  3. GLIMEPIRIDE (GLIMEPIRIDE) [Suspect]
     Dosage: (1/12H)
     Dates: start: 20090407, end: 20121205
  4. SIMVASTATIN (SIMVASTATIN) [Suspect]
     Dates: start: 20080820

REACTIONS (2)
  - Pancreatitis acute [None]
  - Drug interaction [None]
